FAERS Safety Report 17374528 (Version 1)
Quarter: 2020Q1

REPORT INFORMATION
  Report Type: Not Available
  Country: US (occurrence: US)
  Receive Date: 20200205
  Receipt Date: 20200205
  Transmission Date: 20200409
  Serious: Yes (Other)
  Sender: FDA-Public Use
  Company Number: US-NEUROCRINE BIOSCIENCES INC.-2020NBI00251

PATIENT
  Sex: Female

DRUGS (1)
  1. INGREZZA [Suspect]
     Active Substance: VALBENAZINE
     Indication: TARDIVE DYSKINESIA
     Route: 048

REACTIONS (6)
  - Attention deficit/hyperactivity disorder [Unknown]
  - Dyskinesia [Unknown]
  - Post-traumatic stress disorder [Unknown]
  - Memory impairment [Unknown]
  - Depressed mood [Unknown]
  - Lymphoma [Unknown]
